FAERS Safety Report 12868645 (Version 1)
Quarter: 2016Q4

REPORT INFORMATION
  Report Type: Spontaneous
  Country: US (occurrence: US)
  Receive Date: 20161019
  Receipt Date: 20161019
  Transmission Date: 20170207
  Serious: Yes (Other)
  Sender: FDA-Public Use
  Company Number: None

PATIENT
  Age: 68 Year
  Sex: Female
  Weight: 59.02 kg

DRUGS (2)
  1. AMPYRA [Suspect]
     Active Substance: DALFAMPRIDINE
     Route: 048
  2. OXYBUTIN [Concomitant]
     Active Substance: OXYBUTYNIN

REACTIONS (3)
  - Insomnia [None]
  - Tremor [None]
  - Wheelchair user [None]

NARRATIVE: CASE EVENT DATE: 20160914
